FAERS Safety Report 19751977 (Version 3)
Quarter: 2021Q3

REPORT INFORMATION
  Report Type: Report from Study
  Country: FR (occurrence: FR)
  Receive Date: 20210826
  Receipt Date: 20210921
  Transmission Date: 20211014
  Serious: Yes (Life-Threatening, Hospitalization, Disabling, Other)
  Sender: FDA-Public Use
  Company Number: FR-MYLANLABS-2021M1055961

PATIENT
  Age: 53 Year
  Sex: Male
  Weight: 67 kg

DRUGS (4)
  1. VENTOLIN [Suspect]
     Active Substance: ALBUTEROL SULFATE
     Indication: CONGENITAL MYASTHENIC SYNDROME
     Dosage: 2 MILLIGRAM (2 MG/5ML)
  2. SALBUTAMOL [Suspect]
     Active Substance: ALBUTEROL
     Indication: CONGENITAL MYASTHENIC SYNDROME
     Dosage: 2 MILLIGRAM, TID
     Route: 065
     Dates: start: 20171130
  3. SALBUTAMOL [Suspect]
     Active Substance: ALBUTEROL
     Dosage: 6 MILLIGRAM, QD (2 MG, TID (X 3/DAY)
     Route: 048
     Dates: start: 20180101
  4. BISOPROLOL [Concomitant]
     Active Substance: BISOPROLOL
     Dosage: 5 MILLIGRAM, QD
     Dates: start: 20200515

REACTIONS (1)
  - Cerebrovascular accident [Recovered/Resolved with Sequelae]

NARRATIVE: CASE EVENT DATE: 20201022
